FAERS Safety Report 24132026 (Version 1)
Quarter: 2024Q3

REPORT INFORMATION
  Report Type: Spontaneous
  Country: FR (occurrence: FR)
  Receive Date: 20240724
  Receipt Date: 20240724
  Transmission Date: 20241017
  Serious: Yes (Hospitalization)
  Sender: PFIZER
  Company Number: None

PATIENT
  Age: 12 Year
  Sex: Male

DRUGS (4)
  1. CLINDAMYCIN [Suspect]
     Active Substance: CLINDAMYCIN
     Indication: Arthritis bacterial
     Dosage: 150 MG MORNING, MIDDAY AND EVENING
     Route: 048
     Dates: start: 20231222, end: 20240103
  2. CLINDAMYCIN [Suspect]
     Active Substance: CLINDAMYCIN
     Dosage: 300 MG MORNING MIDDAY AND EVENING
     Route: 048
     Dates: start: 20231222, end: 20240103
  3. SULFAMETHOXAZOLE [Suspect]
     Active Substance: SULFAMETHOXAZOLE
     Indication: Arthritis bacterial
     Dosage: 1 TABLET MORNING AND EVENING
     Route: 048
     Dates: start: 20231222, end: 20240103
  4. TRIMETHOPRIM [Suspect]
     Active Substance: TRIMETHOPRIM
     Indication: Arthritis bacterial
     Dosage: 1 TABLET MORNING AND EVENING
     Route: 048
     Dates: start: 20231222, end: 20240103

REACTIONS (4)
  - Pyrexia [Recovered/Resolved]
  - Rash maculo-papular [Recovered/Resolved]
  - Vomiting [Recovered/Resolved]
  - Lymphadenitis [Recovered/Resolved]

NARRATIVE: CASE EVENT DATE: 20240102
